FAERS Safety Report 24127358 (Version 3)
Quarter: 2024Q3

REPORT INFORMATION
  Report Type: Report from Study
  Country: US (occurrence: US)
  Receive Date: 20240723
  Receipt Date: 20240913
  Transmission Date: 20241016
  Serious: Yes (Hospitalization)
  Sender: EISAI
  Company Number: US-Eisai-EC-2024-170486

PATIENT
  Age: 77 Year
  Sex: Female
  Weight: 59 kg

DRUGS (10)
  1. LENVIMA [Suspect]
     Active Substance: LENVATINIB
     Indication: Endometrial cancer
     Route: 048
     Dates: start: 20240708, end: 20240715
  2. LENVIMA [Suspect]
     Active Substance: LENVATINIB
     Dosage: MISSED 1 DOSE
     Route: 048
     Dates: start: 20240722, end: 202408
  3. LENVIMA [Suspect]
     Active Substance: LENVATINIB
     Dosage: MISSED 1 DOSE
     Route: 048
     Dates: start: 202408, end: 2024
  4. LASIX [Suspect]
     Active Substance: FUROSEMIDE
     Indication: Hypertension
     Dosage: DOSE AND FREQUENCY UNKNOWN
     Dates: end: 2024
  5. TAMOXIFEN [Concomitant]
     Active Substance: TAMOXIFEN
  6. KEYTRUDA [Concomitant]
     Active Substance: PEMBROLIZUMAB
     Indication: Endometrial cancer
  7. LABETALOL [Concomitant]
     Active Substance: LABETALOL\LABETALOL HYDROCHLORIDE
  8. LOSARTAN [Concomitant]
     Active Substance: LOSARTAN\LOSARTAN POTASSIUM
  9. MAGNESIUM OXIDE [Concomitant]
     Active Substance: MAGNESIUM OXIDE
  10. ZOFRAN [Concomitant]
     Active Substance: ONDANSETRON HYDROCHLORIDE

REACTIONS (2)
  - Hypertension [Recovering/Resolving]
  - Blood sodium decreased [Unknown]

NARRATIVE: CASE EVENT DATE: 20240101
